FAERS Safety Report 8168020-1 (Version None)
Quarter: 2012Q1

REPORT INFORMATION
  Report Type: 
  Country: None (occurrence: None)
  Receive Date: 20120227
  Receipt Date: 20120214
  Transmission Date: 20120608
  Serious: Yes (Hospitalization)
  Sender: FDA-Public Use
  Company Number: PHHY2010JP58914

PATIENT
  Age: 43 Year
  Sex: Male

DRUGS (24)
  1. NEORAL [Suspect]
     Dosage: 250 MG, UNK
     Route: 048
     Dates: start: 20091023
  2. MYCOPHENOLATE MOFETIL (CELLCEPT) [Suspect]
     Dosage: 1000 MG, UNK
     Route: 048
     Dates: start: 20090930
  3. PREDNISOLONE [Suspect]
     Dosage: 20 MG, UNK
     Route: 048
     Dates: start: 20090912, end: 20090918
  4. NEORAL [Suspect]
     Indication: RENAL TRANSPLANT
     Dosage: 500 MG, UNK
     Route: 048
     Dates: start: 20090823, end: 20090901
  5. NEORAL [Suspect]
     Dosage: 200 MG, UNK
     Route: 048
     Dates: start: 20101005
  6. SANDIMMUNE [Suspect]
     Indication: RENAL TRANSPLANT
     Dosage: UNK UKN, UNK
     Route: 041
     Dates: start: 20090902
  7. PREDNISOLONE [Suspect]
     Dosage: 40 MG, UNK
     Dates: start: 20090906, end: 20090908
  8. PREDNISOLONE [Suspect]
     Dosage: 30 MG, UNK
     Route: 048
     Dates: start: 20090909, end: 20090911
  9. PREDNISOLONE [Suspect]
     Dosage: 5 MG, UNK
     Route: 048
     Dates: start: 20091002
  10. VALGANCICLOVIR [Concomitant]
     Dosage: 450 MG, UNK
     Route: 048
     Dates: start: 20091009, end: 20091012
  11. TAMIFLU [Concomitant]
     Dosage: 150 MG, UNK
     Route: 048
     Dates: start: 20091227, end: 20091231
  12. NEORAL [Suspect]
     Dosage: 350 MG, UNK
     Route: 048
     Dates: start: 20091006
  13. PREDNISOLONE [Suspect]
     Dosage: 50 MG, UNK
     Route: 048
     Dates: start: 20090902, end: 20090905
  14. NEORAL [Suspect]
     Dosage: 500 MG, UNK
     Route: 048
     Dates: start: 20090903
  15. SIMULECT [Concomitant]
     Dosage: 20 MG, UNK
     Route: 042
     Dates: start: 20090906
  16. NEORAL [Suspect]
     Dosage: 300 MG, UNK
     Route: 048
     Dates: start: 20091013
  17. MYCOPHENOLATE MOFETIL (CELLCEPT) [Suspect]
     Indication: RENAL TRANSPLANT
     Dosage: 1000 MG, UNK
     Route: 048
     Dates: start: 20090805
  18. PREDNISOLONE [Suspect]
     Dosage: 10 MG, UNK
     Route: 048
     Dates: start: 20090919, end: 20091001
  19. SIMULECT [Concomitant]
     Indication: RENAL TRANSPLANT
     Dosage: 20 MG, UNK
     Route: 042
     Dates: start: 20090902
  20. METHYLPREDNISOLONE SODIUM SUCCINATE [Concomitant]
     Indication: RENAL TRANSPLANT
     Route: 042
     Dates: start: 20090902, end: 20090902
  21. NEORAL [Suspect]
     Dosage: 400 MG, UNK
     Route: 048
     Dates: start: 20090911
  22. MYCOPHENOLATE MOFETIL (CELLCEPT) [Suspect]
     Dosage: 1500 MG, UNK
     Route: 048
     Dates: start: 20090903, end: 20090929
  23. PREDNISOLONE [Suspect]
     Indication: RENAL TRANSPLANT
     Dosage: 10 MG, UNK
     Route: 048
     Dates: start: 20090828, end: 20090901
  24. RITUXAN [Concomitant]
     Dosage: 200 MG, UNK
     Route: 042
     Dates: start: 20090820, end: 20090820

REACTIONS (7)
  - FOOD POISONING [None]
  - DEHYDRATION [None]
  - ARTHRITIS [None]
  - CELLULITIS [None]
  - CYTOMEGALOVIRUS INFECTION [None]
  - PYREXIA [None]
  - ARTHRALGIA [None]
